FAERS Safety Report 9263678 (Version 2)
Quarter: 2013Q2

REPORT INFORMATION
  Report Type: Spontaneous
  Country: US (occurrence: US)
  Receive Date: 20130430
  Receipt Date: 20130627
  Transmission Date: 20140414
  Serious: No
  Sender: FDA-Public Use
  Company Number: US-PFIZER INC-2013132974

PATIENT
  Age: 53 Year
  Sex: Female
  Weight: 63.49 kg

DRUGS (5)
  1. LYRICA [Suspect]
     Dosage: 75 MG, 3X/DAY
     Route: 048
  2. XANAX [Concomitant]
     Dosage: 1 MG, 3X/DAY
  3. OXYCODONE [Concomitant]
     Dosage: 30MG 5 X /D
  4. SOMA [Concomitant]
     Dosage: 350 MG, 3X/DAY
  5. WELLBUTRIN [Concomitant]
     Dosage: 100 MG, 2X/DAY

REACTIONS (1)
  - Myalgia [Unknown]
